FAERS Safety Report 9785766 (Version 8)
Quarter: 2014Q2

REPORT INFORMATION
  Report Type: Report from Study
  Country: GB (occurrence: GB)
  Receive Date: 20131227
  Receipt Date: 20140404
  Transmission Date: 20141212
  Serious: Yes (Other)
  Sender: FDA-Public Use
  Company Number: GB-VERTEX PHARMACEUTICALS INC-2013-010983

PATIENT
  Age: 60 Year
  Sex: Male

DRUGS (7)
  1. VX-950 (TELAPREVIR) [Suspect]
     Indication: HEPATITIS C
     Dosage: 1125 MG, BID
     Route: 048
     Dates: start: 20131004, end: 20131227
  2. PEGINTERFERON ALFA [Suspect]
     Indication: HEPATITIS C
     Dosage: DOSAGE FORM: INJECTION
     Route: 058
     Dates: start: 20131004
  3. PEGINTERFERON ALFA [Suspect]
     Dosage: 135 ?G, QW
     Route: 058
  4. PEGINTERFERON ALFA [Suspect]
     Dosage: 180 ?G, QW
     Route: 058
  5. RIBAVIRIN [Suspect]
     Indication: HEPATITIS C
     Dosage: UNK, BID
     Route: 048
     Dates: start: 20131004
  6. VITAMIN B [Concomitant]
     Dosage: 1 DF, BID
  7. VITAMIN D [Concomitant]
     Indication: VITAMIN D DEFICIENCY
     Dosage: 400 IU, BID

REACTIONS (11)
  - Neutrophil count decreased [Not Recovered/Not Resolved]
  - Adverse drug reaction [Unknown]
  - Skin odour abnormal [Unknown]
  - Anorectal discomfort [Unknown]
  - Decreased appetite [Unknown]
  - Dizziness [Not Recovered/Not Resolved]
  - Dyspnoea [Unknown]
  - Fatigue [Not Recovered/Not Resolved]
  - Anaemia [Not Recovered/Not Resolved]
  - Nausea [Not Recovered/Not Resolved]
  - Dysgeusia [Unknown]
